FAERS Safety Report 4664035-6 (Version None)
Quarter: 2005Q2

REPORT INFORMATION
  Report Type: 
  Country: None (occurrence: None)
  Receive Date: 20050516
  Receipt Date: 20050429
  Transmission Date: 20051028
  Serious: No
  Sender: FDA-Public Use
  Company Number: REM_00114_2005

PATIENT
  Age: 45 Year
  Sex: Male
  Weight: 127 kg

DRUGS (8)
  1. REMODULIN [Suspect]
     Indication: PULMONARY HYPERTENSION
     Dosage: 4 NG/KG/MIN CONTINOUS SC
     Route: 058
     Dates: start: 20050110, end: 20050215
  2. REMODULIN [Suspect]
     Indication: PULMONARY HYPERTENSION
     Dosage: NG/KN/MIN CONTINUOUS IV
     Route: 042
     Dates: start: 20050215
  3. TRACLEER [Concomitant]
  4. COUMADIN [Concomitant]
  5. ALDACTONE [Concomitant]
  6. LASIX [Concomitant]
  7. ZAROXOLYN [Concomitant]
  8. KLOR-CON [Concomitant]

REACTIONS (3)
  - ERYTHEMA [None]
  - INFUSION SITE ERYTHEMA [None]
  - INFUSION SITE PAIN [None]
